FAERS Safety Report 6068127-9 (Version None)
Quarter: 2009Q1

REPORT INFORMATION
  Report Type: 
  Country: None (occurrence: None)
  Receive Date: 20090121
  Receipt Date: 20080118
  Transmission Date: 20090719
  Serious: Yes (Hospitalization)
  Sender: FDA-Public Use
  Company Number: HQWYE957408JUL04

PATIENT
  Age: 55 Year
  Sex: Female

DRUGS (5)
  1. PREMPRO [Suspect]
     Indication: HORMONE REPLACEMENT THERAPY
     Dosage: ORAL ; ORAL
     Route: 048
     Dates: start: 19960530, end: 20000111
  2. PREMPRO [Suspect]
     Indication: HORMONE REPLACEMENT THERAPY
     Dosage: ORAL ; ORAL
     Route: 048
     Dates: start: 20000328, end: 20000725
  3. PREMARIN [Suspect]
  4. PREMARIN [Suspect]
  5. PREMPHASE 14/14 [Suspect]
     Indication: HORMONE REPLACEMENT THERAPY
     Dosage: ORAL
     Route: 048
     Dates: start: 20000111, end: 20000302

REACTIONS (1)
  - CEREBROVASCULAR ACCIDENT [None]
